FAERS Safety Report 24802487 (Version 1)
Quarter: 2025Q1

REPORT INFORMATION
  Report Type: Spontaneous
  Country: US (occurrence: US)
  Receive Date: 20250103
  Receipt Date: 20250103
  Transmission Date: 20250409
  Serious: Yes (Death, Other)
  Sender: Unknown Manufacturer
  Company Number: US-Shilpa Medicare Limited-SML-US-2021-01207

PATIENT
  Sex: Male

DRUGS (1)
  1. GEMCITABINE [Suspect]
     Active Substance: GEMCITABINE
     Indication: Pancreatic carcinoma

REACTIONS (5)
  - Death [Fatal]
  - Failure to thrive [Unknown]
  - Sepsis [Unknown]
  - Multiple organ dysfunction syndrome [Unknown]
  - Pancytopenia [Unknown]
